FAERS Safety Report 18403711 (Version 2)
Quarter: 2020Q4

REPORT INFORMATION
  Report Type: Spontaneous
  Country: US (occurrence: US)
  Receive Date: 20201020
  Receipt Date: 20201021
  Transmission Date: 20210114
  Serious: Yes (Other)
  Sender: FDA-Public Use
  Company Number: US-PFIZER INC-2020405264

PATIENT
  Age: 24 Year
  Sex: Male

DRUGS (1)
  1. ERYTHROMYCIN. [Suspect]
     Active Substance: ERYTHROMYCIN
     Indication: PNEUMONIA PNEUMOCOCCAL
     Dosage: 1 G, 3X/DAY (1G IN 250 ML OF NACL 0.9%)
     Route: 042

REACTIONS (3)
  - Nausea [Recovered/Resolved]
  - Vomiting [Recovered/Resolved]
  - Incorrect drug administration rate [Recovered/Resolved]
